FAERS Safety Report 6139624-2 (Version None)
Quarter: 2009Q1

REPORT INFORMATION
  Report Type: 
  Country: None (occurrence: None)
  Receive Date: 20090330
  Receipt Date: 20090319
  Transmission Date: 20090719
  Serious: Yes (Other)
  Sender: FDA-Public Use
  Company Number: CHNY2009FR01402

PATIENT
  Age: 84 Year
  Sex: Female

DRUGS (13)
  1. HYOSCINE HBR HYT [Suspect]
     Indication: DYSPHAGIA
     Dosage: 1 DF, Q72H, TRANSDERMAL
     Route: 062
     Dates: start: 20080101, end: 20080101
  2. HYOSCINE HBR HYT [Suspect]
     Indication: DYSPHAGIA
     Dosage: 1 DF, Q72H, TRANSDERMAL
     Route: 062
     Dates: start: 20080101, end: 20090101
  3. STIMOL (CITRULLINE MALATE) [Concomitant]
  4. ETHIAZIDE (ETHIAZIDE) [Concomitant]
  5. ACETAMINOPHEN [Concomitant]
  6. PRAMIPEXOLE DIHYDROCHLORIDE [Concomitant]
  7. SILOMAT (CLOBUTINOL HYDROCHLORIDE) [Concomitant]
  8. FOLIC ACID [Concomitant]
  9. LANSOPRAZOLE [Concomitant]
  10. PRAZEPAM [Concomitant]
  11. FERO-GRAD /AUS/ (FERROUS SULFATE) [Concomitant]
  12. HIBISCRUB (CHLORHEXIDINE GLUCONATE) [Concomitant]
  13. SEREVENT [Concomitant]

REACTIONS (9)
  - APPLICATION SITE VESICLES [None]
  - AURICULAR SWELLING [None]
  - BLISTER [None]
  - DRUG INEFFECTIVE [None]
  - HYPERSENSITIVITY [None]
  - INFLAMMATION [None]
  - OFF LABEL USE [None]
  - PURULENT DISCHARGE [None]
  - SKIN REACTION [None]
